FAERS Safety Report 20709225 (Version 1)
Quarter: 2022Q2

REPORT INFORMATION
  Report Type: Spontaneous
  Country: US (occurrence: US)
  Receive Date: 20220414
  Receipt Date: 20220414
  Transmission Date: 20220721
  Serious: Yes (Other)
  Sender: FDA-Public Use
  Company Number: US-PFIZER INC-202200503282

PATIENT
  Age: 82 Year
  Sex: Male

DRUGS (4)
  1. TIGECYCLINE [Suspect]
     Active Substance: TIGECYCLINE
     Indication: Mycobacterium abscessus infection
     Dosage: 100 MG (LOADING DOSE)
     Route: 042
  2. TIGECYCLINE [Suspect]
     Active Substance: TIGECYCLINE
     Dosage: 50 MG, DAILY
     Route: 042
  3. AZITHROMYCIN [Concomitant]
     Active Substance: AZITHROMYCIN
     Indication: Mycobacterium abscessus infection
     Dosage: 500 MG, DAILY
     Route: 048
  4. AMIKACIN [Concomitant]
     Active Substance: AMIKACIN
     Dosage: 25 MG/KG, 3 TIMES/WEEK
     Route: 051

REACTIONS (3)
  - Syncope [Unknown]
  - Gastrointestinal disorder [Unknown]
  - Off label use [Unknown]
